FAERS Safety Report 14647672 (Version 1)
Quarter: 2018Q1

REPORT INFORMATION
  Report Type: Spontaneous
  Country: US (occurrence: US)
  Receive Date: 20180316
  Receipt Date: 20180316
  Transmission Date: 20180509
  Serious: No
  Sender: FDA-Public Use
  Company Number: PHEH2018US009624

PATIENT
  Sex: Female
  Weight: 70.3 kg

DRUGS (6)
  1. SYNTHROID [Interacting]
     Active Substance: LEVOTHYROXINE SODIUM
     Indication: PRODUCT USED FOR UNKNOWN INDICATION
     Route: 065
  2. OSCIMIN [Concomitant]
     Active Substance: HYOSCYAMINE SULFATE
     Indication: PRODUCT USED FOR UNKNOWN INDICATION
     Dosage: 0.125 MG, QID (AS NEEDED)
     Route: 065
  3. CHOLESTYRAMINE FOR ORAL SUSPENSION USP [Interacting]
     Active Substance: CHOLESTYRAMINE
     Dosage: 1 UNK, QD
     Route: 048
  4. CHOLESTYRAMINE FOR ORAL SUSPENSION USP [Suspect]
     Active Substance: CHOLESTYRAMINE
     Indication: DIARRHOEA
     Dosage: 0.5 DF, UNK (MIXED WITH 4-5 OZ WATER)
     Route: 048
     Dates: start: 201711
  5. CHOLESTYRAMINE FOR ORAL SUSPENSION USP [Interacting]
     Active Substance: CHOLESTYRAMINE
     Dosage: 2 DF, QD
     Route: 048
  6. CHOLESTYRAMINE FOR ORAL SUSPENSION USP [Interacting]
     Active Substance: CHOLESTYRAMINE
     Dosage: REDUCED DOSE (75 PERCENTAGE), QD
     Route: 048

REACTIONS (3)
  - Drug interaction [Unknown]
  - Constipation [Not Recovered/Not Resolved]
  - Blood thyroid stimulating hormone increased [Not Recovered/Not Resolved]
